FAERS Safety Report 25723872 (Version 1)
Quarter: 2025Q3

REPORT INFORMATION
  Report Type: Spontaneous
  Country: EU (occurrence: EU)
  Receive Date: 20250825
  Receipt Date: 20250825
  Transmission Date: 20251020
  Serious: Yes (Other)
  Sender: ALEXION PHARMACEUTICALS
  Company Number: EU-AstraZeneca-CH-00933664A

PATIENT
  Sex: Male

DRUGS (1)
  1. KOSELUGO [Suspect]
     Active Substance: SELUMETINIB
     Indication: Neurofibromatosis
     Route: 065

REACTIONS (5)
  - Glioma [Unknown]
  - Abdominal pain [Unknown]
  - Dermatitis acneiform [Unknown]
  - Paronychia [Unknown]
  - Rash [Unknown]
